FAERS Safety Report 8546898 (Version 2)
Quarter: 2012Q4

REPORT INFORMATION
  Report Type: 
  Country: CH (occurrence: CH)
  Receive Date: 20120504
  Receipt Date: 20121009
  Transmission Date: 20130627
  Serious: Yes (Hospitalization, Other)
  Sender: FDA-Public Use
  Company Number: PHHY2012CH035758

PATIENT
  Age: 47 Year
  Sex: Male

DRUGS (5)
  1. FTY 720 [Suspect]
     Indication: MULTIPLE SCLEROSIS
     Route: 048
  2. CELECOXIB [Suspect]
     Indication: PSORIASIS
     Dates: start: 2007
  3. LOSARTAN [Concomitant]
     Indication: HYPERTENSION
     Dosage: UNK UKN, UNK
  4. HYDROCHLOROTHIAZIDE ^LECIVA^ [Concomitant]
     Indication: HYPERTENSION
     Dosage: UNK UKN, UNK
  5. AMLODIPINE [Concomitant]
     Indication: HYPERTENSION
     Dosage: UNK UKN, UNK

REACTIONS (51)
  - Cardiac failure congestive [Recovering/Resolving]
  - Left ventricular dysfunction [Recovering/Resolving]
  - Systolic dysfunction [Recovering/Resolving]
  - Mitral valve incompetence [Recovering/Resolving]
  - Mitral valve calcification [Recovering/Resolving]
  - Tricuspid valve incompetence [Recovering/Resolving]
  - N-terminal prohormone brain natriuretic peptide increased [Recovering/Resolving]
  - Pulmonary hypertension [Recovering/Resolving]
  - Rales [Recovering/Resolving]
  - Pyrexia [Recovering/Resolving]
  - Aortic disorder [Recovering/Resolving]
  - Oedema [Recovering/Resolving]
  - Oedema peripheral [Not Recovered/Not Resolved]
  - Dyspnoea [Recovering/Resolving]
  - Dyspnoea exertional [Recovering/Resolving]
  - Dyspnoea paroxysmal nocturnal [Recovering/Resolving]
  - Orthopnoea [Recovering/Resolving]
  - Dilatation ventricular [Recovering/Resolving]
  - Breath sounds abnormal [Recovering/Resolving]
  - Arrhythmia [Recovering/Resolving]
  - Atrial fibrillation [Recovering/Resolving]
  - Palpitations [Recovering/Resolving]
  - Heart rate irregular [Recovering/Resolving]
  - Endocarditis [Recovering/Resolving]
  - Angina pectoris [Recovering/Resolving]
  - Atrioventricular block first degree [Recovering/Resolving]
  - Polyarthritis [Unknown]
  - Dactylitis [Unknown]
  - Onycholysis [Unknown]
  - Sciatica [Unknown]
  - Joint range of motion decreased [Unknown]
  - Peroneal nerve palsy [Unknown]
  - Myalgia [Unknown]
  - Vomiting [Unknown]
  - Abdominal pain [Unknown]
  - Fatigue [Unknown]
  - Hyperhidrosis [Unknown]
  - Polyuria [Unknown]
  - Pallor [Unknown]
  - Nocturia [Unknown]
  - Retching [Unknown]
  - Mucosal dryness [Unknown]
  - Muscle spasticity [Unknown]
  - Hypotonia [Unknown]
  - Hypoaesthesia [Unknown]
  - Extensor plantar response [Unknown]
  - Anorectal disorder [Unknown]
  - Areflexia [Unknown]
  - Paraesthesia [Unknown]
  - Dizziness [Unknown]
  - Diarrhoea [Unknown]
